FAERS Safety Report 7347038-2 (Version None)
Quarter: 2011Q1

REPORT INFORMATION
  Report Type: 
  Country: None (occurrence: None)
  Receive Date: 20110311
  Receipt Date: 20110309
  Transmission Date: 20110831
  Serious: Yes (Death)
  Sender: FDA-Public Use
  Company Number: PHHY2011US09822

PATIENT
  Sex: Female

DRUGS (9)
  1. REMERON [Concomitant]
     Dosage: 7.5 MG, QD
  2. ADVAIR DISKUS 100/50 [Concomitant]
  3. ASPIRIN [Concomitant]
     Dosage: 81 MG, UNK
  4. RECLAST [Suspect]
     Dosage: UNK
     Dates: start: 20100223
  5. SPIRIVA [Concomitant]
  6. POTASSIUM [Concomitant]
  7. ZANTAC [Concomitant]
     Dosage: 300 MG, QD
  8. ATENOLOL [Concomitant]
     Dosage: 50 MG, QD
  9. LASIX [Concomitant]
     Dosage: 20 MG, QD

REACTIONS (1)
  - DEATH [None]
